FAERS Safety Report 15606100 (Version 1)
Quarter: 2018Q4

REPORT INFORMATION
  Report Type: Spontaneous
  Country: DE (occurrence: DE)
  Receive Date: 20181112
  Receipt Date: 20181112
  Transmission Date: 20190205
  Serious: Yes (Other)
  Sender: FDA-Public Use
  Company Number: DE-TEVA-2018-DE-972879

PATIENT
  Age: 81 Year
  Sex: Male
  Weight: 78 kg

DRUGS (3)
  1. PANTOPRAZOL AUROBINDO 40 MG MSR TABLETTEN [Concomitant]
     Dosage: 40 MILLIGRAM DAILY;
     Dates: start: 20180327
  2. TORASEMID [Concomitant]
     Active Substance: TORSEMIDE
     Dates: start: 20180327
  3. SPIRONOLACTON 50 MG RATIOPHARM TABLETTEN [Suspect]
     Active Substance: SPIRONOLACTONE
     Dosage: 100 MILLIGRAM DAILY;
     Dates: start: 20180818

REACTIONS (5)
  - Musculoskeletal stiffness [Not Recovered/Not Resolved]
  - Peripheral coldness [Not Recovered/Not Resolved]
  - Dizziness postural [Not Recovered/Not Resolved]
  - Loss of consciousness [Not Recovered/Not Resolved]
  - Apathy [Not Recovered/Not Resolved]

NARRATIVE: CASE EVENT DATE: 20180830
